FAERS Safety Report 9320640 (Version 2)
Quarter: 2013Q2

REPORT INFORMATION
  Report Type: Report from Study
  Country: AU (occurrence: AU)
  Receive Date: 20130531
  Receipt Date: 20130625
  Transmission Date: 20140414
  Serious: Yes (Death)
  Sender: FDA-Public Use
  Company Number: AU-ROCHE-1230972

PATIENT
  Sex: Female

DRUGS (5)
  1. ZELBORAF [Suspect]
     Indication: MALIGNANT MELANOMA
     Route: 048
     Dates: start: 20121228, end: 20130428
  2. DEXAMETHASONE [Concomitant]
     Route: 048
     Dates: start: 20130426
  3. DICLOFENAC [Concomitant]
     Indication: BONE PAIN
     Route: 048
     Dates: start: 20130426
  4. HALOPERIDOL [Concomitant]
     Indication: NAUSEA
     Route: 048
     Dates: start: 20130426
  5. OXYCODONE [Concomitant]
     Indication: BONE PAIN
     Route: 048
     Dates: start: 20130426

REACTIONS (1)
  - Malignant melanoma [Fatal]
